FAERS Safety Report 11993067 (Version 1)
Quarter: 2016Q1

REPORT INFORMATION
  Report Type: Spontaneous
  Country: US (occurrence: None)
  Receive Date: 20160202
  Receipt Date: 20160202
  Transmission Date: 20160526
  Serious: Yes (Life-Threatening, Disabling)
  Sender: FDA-Public Use
  Company Number: None

PATIENT
  Age: 13 Day
  Sex: Female
  Weight: 61.24 kg

DRUGS (1)
  1. SUPRAX [Suspect]
     Active Substance: CEFIXIME
     Indication: EYE PAIN
     Dosage: 1 PILL PER DAY
     Dates: start: 20160116, end: 20160125

REACTIONS (13)
  - Eye irritation [None]
  - Erythema [None]
  - Abdominal discomfort [None]
  - Eye swelling [None]
  - Nocturia [None]
  - Rhinorrhoea [None]
  - Feeling hot [None]
  - Ocular hyperaemia [None]
  - Fatigue [None]
  - Paraesthesia [None]
  - Discomfort [None]
  - Anxiety [None]
  - Diarrhoea [None]

NARRATIVE: CASE EVENT DATE: 20160120
